FAERS Safety Report 7751797-4 (Version None)
Quarter: 2011Q3

REPORT INFORMATION
  Report Type: 
  Country: None (occurrence: None)
  Receive Date: 20110915
  Receipt Date: 20110907
  Transmission Date: 20111222
  Serious: Yes (Other)
  Sender: FDA-Public Use
  Company Number: DE-AMGEN-DEUSP2011038940

PATIENT
  Age: 72 Year
  Sex: Female
  Weight: 55 kg

DRUGS (4)
  1. RAMIPRIL [Concomitant]
     Indication: HYPERTENSION
  2. LEVOTHYROXINE SODIUM [Concomitant]
     Indication: HYPOTHYROIDISM
     Dosage: 75 MG, UNK
  3. ACETYLSALICYLIC ACID SRT [Concomitant]
     Indication: CORONARY ARTERY DISEASE
  4. PROLIA [Suspect]
     Indication: OSTEOPOROSIS
     Dosage: 60 MG, UNK
     Route: 058
     Dates: start: 20110112, end: 20110715

REACTIONS (3)
  - HYPERSENSITIVITY [None]
  - CARDIOVASCULAR DISORDER [None]
  - INCORRECT ROUTE OF DRUG ADMINISTRATION [None]
